FAERS Safety Report 7166928-7 (Version None)
Quarter: 2010Q4

REPORT INFORMATION
  Report Type: 
  Country: None (occurrence: None)
  Receive Date: 20101216
  Receipt Date: 20101207
  Transmission Date: 20110411
  Serious: Yes (Disabling)
  Sender: FDA-Public Use
  Company Number: JP-ASTRAZENECA-2010SE47213

PATIENT
  Age: 38 Year
  Sex: Female
  Weight: 105 kg

DRUGS (10)
  1. LIDOCAINE [Suspect]
     Indication: LOCAL ANAESTHESIA
     Route: 053
  2. LIDOCAINE [Suspect]
     Indication: NERVE BLOCK
     Route: 053
  3. LIDOCAINE [Suspect]
     Route: 053
  4. LIDOCAINE [Suspect]
     Route: 053
  5. LIDOCAINE [Suspect]
     Dosage: DOSE UNKNOWN
     Route: 053
  6. LIDOCAINE [Suspect]
     Dosage: DOSE UNKNOWN
     Route: 053
  7. LIDOCAINE [Suspect]
     Dosage: DOSE UNKNOWN
     Route: 053
  8. LIDOCAINE [Suspect]
     Dosage: DOSE UNKNOWN
     Route: 053
  9. FORMCRESOL FC [Concomitant]
     Dosage: DOSE UNKNOWN
     Route: 065
  10. CALCIUM HYDROXIDE [Concomitant]
     Dosage: DOSE UNKNOWN
     Route: 065

REACTIONS (1)
  - PARALYSIS [None]
